FAERS Safety Report 12729715 (Version 3)
Quarter: 2016Q4

REPORT INFORMATION
  Report Type: Spontaneous
  Country: GB (occurrence: GB)
  Receive Date: 20160909
  Receipt Date: 20161117
  Transmission Date: 20170207
  Serious: Yes (Other)
  Sender: FDA-Public Use
  Company Number: ALCN2016GB006150

PATIENT
  Age: 74 Year
  Sex: Female

DRUGS (5)
  1. DEXAMETHASONE. [Suspect]
     Active Substance: DEXAMETHASONE
     Indication: CORNEAL OPACITY
     Dosage: 1 DF, Q2H
     Route: 047
  2. DEXAMETHASONE. [Suspect]
     Active Substance: DEXAMETHASONE
     Indication: CORNEAL OEDEMA
  3. DEXAMETHASONE. [Suspect]
     Active Substance: DEXAMETHASONE
     Indication: VISUAL ACUITY REDUCED
  4. CHLORAMPHENICOL [Suspect]
     Active Substance: CHLORAMPHENICOL
     Indication: CORNEAL OEDEMA
  5. CHLORAMPHENICOL [Suspect]
     Active Substance: CHLORAMPHENICOL
     Indication: CORNEAL OPACITY
     Dosage: 1 DF, QID
     Route: 065

REACTIONS (5)
  - Corneal disorder [Not Recovered/Not Resolved]
  - Drug ineffective [Unknown]
  - Corneal oedema [Recovering/Resolving]
  - Detached Descemet^s membrane [Not Recovered/Not Resolved]
  - Vision blurred [Unknown]
